FAERS Safety Report 15207714 (Version 1)
Quarter: 2018Q3

REPORT INFORMATION
  Report Type: Spontaneous
  Country: US (occurrence: US)
  Receive Date: 20180727
  Receipt Date: 20180727
  Transmission Date: 20181010
  Serious: No
  Sender: FDA-Public Use
  Company Number: US-ALLERGAN-1735455US

PATIENT
  Age: 47 Year
  Sex: Male

DRUGS (5)
  1. LOSARTAN. [Concomitant]
     Active Substance: LOSARTAN
     Indication: HYPERTENSION
     Dosage: UNK
  2. ANDRODERM [Suspect]
     Active Substance: TESTOSTERONE
     Dosage: 4 MG, QOD
     Route: 062
     Dates: start: 201708, end: 201708
  3. HYDROCHLOROTHIAZIDE. [Concomitant]
     Active Substance: HYDROCHLOROTHIAZIDE
     Indication: DIURETIC THERAPY
     Dosage: UNK
  4. LIPITOR [Concomitant]
     Active Substance: ATORVASTATIN CALCIUM
     Indication: BLOOD CHOLESTEROL INCREASED
     Dosage: UNK
  5. ANDRODERM [Suspect]
     Active Substance: TESTOSTERONE
     Indication: BLOOD TESTOSTERONE DECREASED
     Dosage: 4 MG, QD
     Route: 062

REACTIONS (4)
  - Inappropriate schedule of drug administration [Unknown]
  - Drug dose omission [Unknown]
  - Product adhesion issue [Unknown]
  - Pain of skin [Unknown]
